FAERS Safety Report 17579801 (Version 1)
Quarter: 2020Q1

REPORT INFORMATION
  Report Type: Spontaneous
  Country: US (occurrence: US)
  Receive Date: 20200325
  Receipt Date: 20200325
  Transmission Date: 20200409
  Serious: Yes (Other)
  Sender: FDA-Public Use
  Company Number: US-JNJFOC-20200325218

PATIENT
  Sex: Male

DRUGS (1)
  1. REMICADE [Suspect]
     Active Substance: INFLIXIMAB
     Indication: PRODUCT USED FOR UNKNOWN INDICATION
     Route: 042
     Dates: start: 2000

REACTIONS (5)
  - Asthma [Unknown]
  - Hip surgery [Unknown]
  - Medication error [Unknown]
  - Therapeutic response decreased [Not Recovered/Not Resolved]
  - Rheumatoid factor [Unknown]

NARRATIVE: CASE EVENT DATE: 2008
